FAERS Safety Report 4921453-6 (Version None)
Quarter: 2006Q1

REPORT INFORMATION
  Report Type: 
  Country: None (occurrence: None)
  Receive Date: 20060224
  Receipt Date: 20060215
  Transmission Date: 20060701
  Serious: Yes (Hospitalization)
  Sender: FDA-Public Use
  Company Number: FR-BRISTOL-MYERS SQUIBB COMPANY-13285622

PATIENT
  Age: 69 Year
  Sex: Female

DRUGS (12)
  1. MUCOMYST [Suspect]
     Route: 048
     Dates: start: 20051215, end: 20060113
  2. ELISOR TABS 20 MG [Suspect]
     Route: 048
  3. TAZOCILLINE [Suspect]
     Indication: SUBACUTE ENDOCARDITIS
  4. TRIFLUCAN [Suspect]
     Route: 048
     Dates: start: 20051215, end: 20060113
  5. NOLVADEX [Suspect]
     Indication: BREAST CANCER
     Dates: end: 20060113
  6. OMEPRAZOLE [Suspect]
     Route: 048
     Dates: end: 20060113
  7. ATARAX [Suspect]
     Dates: start: 20060102, end: 20060113
  8. COVERSYL [Suspect]
     Route: 048
  9. LASILIX [Suspect]
  10. UMULINE PROFIL [Suspect]
  11. CORTANCYL [Suspect]
  12. SERETIDE [Suspect]

REACTIONS (1)
  - AGRANULOCYTOSIS [None]
